FAERS Safety Report 17970923 (Version 1)
Quarter: 2020Q3

REPORT INFORMATION
  Report Type: Spontaneous
  Country: DO (occurrence: DO)
  Receive Date: 20200702
  Receipt Date: 20200702
  Transmission Date: 20201103
  Serious: No
  Sender: FDA-Public Use
  Company Number: DO-LUPIN PHARMACEUTICALS INC.-2020-00736

PATIENT
  Sex: Male

DRUGS (1)
  1. SIMVASTATIN TABLETS USP, 80 MG [Suspect]
     Active Substance: SIMVASTATIN
     Indication: PRODUCT USED FOR UNKNOWN INDICATION
     Dosage: UNK
     Route: 048
     Dates: start: 201903

REACTIONS (1)
  - Expired product administered [Unknown]
